FAERS Safety Report 16958353 (Version 2)
Quarter: 2019Q4

REPORT INFORMATION
  Report Type: Spontaneous
  Country: US (occurrence: US)
  Receive Date: 20191024
  Receipt Date: 20191119
  Transmission Date: 20200122
  Serious: No
  Sender: FDA-Public Use
  Company Number: US-ASTRAZENECA-2019SF37595

PATIENT
  Age: 19767 Day
  Sex: Female
  Weight: 131.5 kg

DRUGS (2)
  1. BYDUREON BCISE [Suspect]
     Active Substance: EXENATIDE
     Indication: DIABETES MELLITUS
     Route: 065
     Dates: start: 2018
  2. REPATHA [Concomitant]
     Active Substance: EVOLOCUMAB

REACTIONS (4)
  - Injection site pain [Recovered/Resolved]
  - Device issue [Unknown]
  - Product dose omission [Unknown]
  - Intentional device misuse [Unknown]

NARRATIVE: CASE EVENT DATE: 20190923
